FAERS Safety Report 21525580 (Version 1)
Quarter: 2022Q4

REPORT INFORMATION
  Report Type: Spontaneous
  Country: US (occurrence: US)
  Receive Date: 20221031
  Receipt Date: 20221031
  Transmission Date: 20230113
  Serious: Yes (Life-Threatening, Hospitalization)
  Sender: FDA-Public Use
  Company Number: US-STRIDES ARCOLAB LIMITED-2022SP014248

PATIENT
  Age: 40 Year
  Sex: Female

DRUGS (1)
  1. AMLODIPINE [Suspect]
     Active Substance: AMLODIPINE BESYLATE
     Indication: Product used for unknown indication
     Dosage: 1 DOSAGE FORM (INGESTED 80-90 TABLETS OF AMLODIPINE)
     Route: 048

REACTIONS (4)
  - Cardiogenic shock [Unknown]
  - Distributive shock [Unknown]
  - Intentional overdose [Unknown]
  - Toxicity to various agents [Unknown]
